FAERS Safety Report 14768912 (Version 1)
Quarter: 2018Q2

REPORT INFORMATION
  Report Type: Spontaneous
  Country: US (occurrence: US)
  Receive Date: 20180417
  Receipt Date: 20180417
  Transmission Date: 20180711
  Serious: Yes (Hospitalization, Other)
  Sender: FDA-Public Use
  Company Number: US-BAYER-2018-067026

PATIENT
  Age: 53 Year
  Sex: Male

DRUGS (4)
  1. ADEMPAS [Suspect]
     Active Substance: RIOCIGUAT
     Indication: PRODUCT USED FOR UNKNOWN INDICATION
  2. UPTRAVI [Suspect]
     Active Substance: SELEXIPAG
     Indication: PRODUCT USED FOR UNKNOWN INDICATION
     Dosage: 1600 ?G, BID
  3. AMBRISENTAN [Suspect]
     Active Substance: AMBRISENTAN
     Indication: PULMONARY HYPERTENSION
     Dosage: 5 MG, QD
     Dates: start: 20170309
  4. ADEMPAS [Suspect]
     Active Substance: RIOCIGUAT
     Indication: PRODUCT USED FOR UNKNOWN INDICATION
     Dosage: 2.5 MG, TID

REACTIONS (26)
  - Intestinal scarring [Not Recovered/Not Resolved]
  - Dyspnoea exertional [Not Recovered/Not Resolved]
  - Road traffic accident [None]
  - Diarrhoea [Not Recovered/Not Resolved]
  - Weight decreased [None]
  - Chest pain [Not Recovered/Not Resolved]
  - Fatigue [Recovering/Resolving]
  - Dyspnoea [Not Recovered/Not Resolved]
  - Headache [None]
  - Systemic lupus erythematosus [Not Recovered/Not Resolved]
  - Insurance issue [None]
  - Rash generalised [None]
  - Dyspnoea at rest [Not Recovered/Not Resolved]
  - Vomiting [Not Recovered/Not Resolved]
  - Large intestine polyp [None]
  - Drug dose omission [None]
  - Pancreatitis [Not Recovered/Not Resolved]
  - Nausea [Not Recovered/Not Resolved]
  - Face oedema [Not Recovered/Not Resolved]
  - Decreased appetite [Not Recovered/Not Resolved]
  - Rash [Not Recovered/Not Resolved]
  - Myocardial necrosis marker increased [Not Recovered/Not Resolved]
  - Abdominal pain upper [Not Recovered/Not Resolved]
  - Condition aggravated [None]
  - Gastric disorder [None]
  - Blood sodium decreased [Not Recovered/Not Resolved]

NARRATIVE: CASE EVENT DATE: 2016
